FAERS Safety Report 5710611-9 (Version None)
Quarter: 2008Q2

REPORT INFORMATION
  Report Type: 
  Country: None (occurrence: None)
  Receive Date: 20080415
  Receipt Date: 20080401
  Transmission Date: 20081010
  Serious: Yes (Hospitalization, Disabling)
  Sender: FDA-Public Use
  Company Number: 2007002220

PATIENT
  Age: 75 Year
  Sex: Female
  Weight: 68.9 kg

DRUGS (10)
  1. ERLOTINIB (ERLOTINIB HCL) (TABLET) (ERLOTINIB HCL) [Suspect]
     Indication: NON-SMALL CELL LUNG CANCER
     Dosage: (150 MG, QD), ORAL
     Route: 048
     Dates: start: 20070614, end: 20071029
  2. GEMCITABINE [Suspect]
     Dosage: (1700 MG), INTRAVENOUS
     Route: 042
     Dates: start: 20070604, end: 20070813
  3. NORVASC [Concomitant]
  4. BENAZEPRIL HCL [Concomitant]
  5. LEXAPRO [Concomitant]
  6. DETROL [Concomitant]
  7. CLARINEX [Concomitant]
  8. HYDROCHLOROTHIAZIDE [Concomitant]
  9. IRON POLYSACCHARIDE (POLYSACCHARIDE-IRON COMPLEX) [Concomitant]
  10. VITAMIN E [Concomitant]

REACTIONS (19)
  - ABDOMINAL PAIN LOWER [None]
  - ANAEMIA [None]
  - DIARRHOEA [None]
  - DIVERTICULUM [None]
  - DYSPNOEA [None]
  - FATIGUE [None]
  - GALLBLADDER DISORDER [None]
  - HAEMATOCRIT DECREASED [None]
  - HAEMOGLOBIN DECREASED [None]
  - LUNG NEOPLASM MALIGNANT [None]
  - MALIGNANT NEOPLASM PROGRESSION [None]
  - MASS [None]
  - METASTASES TO GALLBLADDER [None]
  - NEOPLASM [None]
  - PLATELET COUNT INCREASED [None]
  - PLEURAL EFFUSION [None]
  - PULMONARY EMBOLISM [None]
  - RECTAL HAEMORRHAGE [None]
  - WHITE BLOOD CELL COUNT INCREASED [None]
